FAERS Safety Report 20290716 (Version 1)
Quarter: 2022Q1

REPORT INFORMATION
  Report Type: Spontaneous
  Country: US (occurrence: None)
  Receive Date: 20220103
  Receipt Date: 20220103
  Transmission Date: 20220423
  Serious: Yes (Other)
  Sender: FDA-Public Use
  Company Number: None

PATIENT
  Age: 66 Year
  Sex: Female
  Weight: 74.25 kg

DRUGS (1)
  1. BUSPIRONE [Suspect]
     Active Substance: BUSPIRONE HYDROCHLORIDE
     Indication: Anxiety
     Dosage: FREQUENCY : 3 TIMES A DAY;?
     Route: 048
     Dates: start: 20211101, end: 20211102

REACTIONS (7)
  - Heart rate increased [None]
  - Dysarthria [None]
  - Feeling jittery [None]
  - Vision blurred [None]
  - Dizziness [None]
  - Dyskinesia [None]
  - Burning sensation [None]

NARRATIVE: CASE EVENT DATE: 20211102
